FAERS Safety Report 15138788 (Version 1)
Quarter: 2018Q3

REPORT INFORMATION
  Report Type: Spontaneous
  Country: GB (occurrence: GB)
  Receive Date: 20180713
  Receipt Date: 20180713
  Transmission Date: 20181010
  Serious: Yes (Other)
  Sender: FDA-Public Use
  Company Number: GB-TEVA-2018-GB-925230

PATIENT
  Age: 54 Year
  Sex: Male

DRUGS (2)
  1. QUETIAPINE. [Suspect]
     Active Substance: QUETIAPINE
     Route: 065
  2. DIAZEPAM. [Concomitant]
     Active Substance: DIAZEPAM

REACTIONS (5)
  - Feeling cold [Not Recovered/Not Resolved]
  - Loss of consciousness [Recovered/Resolved]
  - Chills [Not Recovered/Not Resolved]
  - Pain [Recovered/Resolved]
  - Photosensitivity reaction [Not Recovered/Not Resolved]
